FAERS Safety Report 9833238 (Version 2)
Quarter: 2014Q1

REPORT INFORMATION
  Report Type: Spontaneous
  Country: US (occurrence: US)
  Receive Date: 20140121
  Receipt Date: 20140121
  Transmission Date: 20141002
  Serious: Yes (Hospitalization)
  Sender: FDA-Public Use
  Company Number: US-ACTELION-A-US2013-91840

PATIENT
  Age: 19 Year
  Sex: Male

DRUGS (14)
  1. VELETRI [Suspect]
     Indication: PULMONARY ARTERIAL HYPERTENSION
     Dosage: 18 UNK, UNK
     Route: 042
     Dates: start: 201104
  2. SILDENAFIL [Concomitant]
  3. WARFARIN [Concomitant]
  4. MILRINONE [Concomitant]
  5. TORSEMIDE [Concomitant]
  6. SPIRONOLACTONE [Concomitant]
  7. RANITIDINE [Concomitant]
  8. LEVOTHYROXINE [Concomitant]
  9. PINDOLOL [Concomitant]
  10. AMIODARONE [Concomitant]
  11. HYDROCHLOROTHIAZIDE [Concomitant]
  12. SINGULAIR [Concomitant]
  13. POTASSIUM [Concomitant]
  14. CALCIUM [Concomitant]

REACTIONS (4)
  - Upper respiratory tract infection [Recovered/Resolved]
  - Dyspnoea [Recovered/Resolved]
  - Fatigue [Recovered/Resolved]
  - Productive cough [Recovered/Resolved]
